FAERS Safety Report 20433339 (Version 2)
Quarter: 2023Q1

REPORT INFORMATION
  Report Type: Spontaneous
  Country: DK (occurrence: DK)
  Receive Date: 20220205
  Receipt Date: 20230125
  Transmission Date: 20230418
  Serious: Yes (Congenital Anomaly)
  Sender: FDA-Public Use
  Company Number: None

PATIENT

DRUGS (4)
  1. TACROLIMUS [Suspect]
     Active Substance: TACROLIMUS
     Dosage: DOSE: 2 AND 3 MG ALTERNATING DAILY ?STRENGTH: 1 MG
     Route: 064
     Dates: start: 20210424
  2. CYCLIZINE HYDROCHLORIDE [Concomitant]
     Active Substance: CYCLIZINE HYDROCHLORIDE
     Dates: start: 20210719
  3. ONDANSETRON [Concomitant]
     Active Substance: ONDANSETRON
     Dosage: DOSE: 4 MG X 3 AS NECESSARY
     Dates: start: 20210719
  4. TACROLIMUS [Suspect]
     Active Substance: TACROLIMUS
     Indication: Habitual abortion
     Dosage: DOSE: 2 AND 3 MG ALTERNATING DAILY STRENGTH: 1 MG
     Route: 064
     Dates: start: 20210424

REACTIONS (2)
  - Foetal exposure during pregnancy [Unknown]
  - Renal dysplasia [Not Recovered/Not Resolved]

NARRATIVE: CASE EVENT DATE: 20210927
